FAERS Safety Report 25247990 (Version 2)
Quarter: 2025Q2

REPORT INFORMATION
  Report Type: Spontaneous
  Country: QA (occurrence: QA)
  Receive Date: 20250429
  Receipt Date: 20250502
  Transmission Date: 20250716
  Serious: Yes (Death, Hospitalization, Other)
  Sender: AMGEN
  Company Number: QA-SERVIER-S25005589

PATIENT

DRUGS (2)
  1. IVABRADINE [Suspect]
     Active Substance: IVABRADINE
     Indication: Heart failure with reduced ejection fraction
     Route: 065
  2. IVABRADINE [Suspect]
     Active Substance: IVABRADINE
     Route: 065

REACTIONS (2)
  - Death [Fatal]
  - Cardiovascular disorder [Fatal]
